FAERS Safety Report 12559362 (Version 1)
Quarter: 2016Q3

REPORT INFORMATION
  Report Type: Spontaneous
  Country: US (occurrence: None)
  Receive Date: 20160714
  Receipt Date: 20160714
  Transmission Date: 20161109
  Serious: Yes (Other)
  Sender: FDA-Public Use
  Company Number: None

PATIENT
  Age: 58 Year
  Sex: Female
  Weight: 62.6 kg

DRUGS (1)
  1. ATORVASTATIN 10MG [Suspect]
     Active Substance: ATORVASTATIN
     Route: 048

REACTIONS (2)
  - Pain [None]
  - Gait disturbance [None]
